FAERS Safety Report 24967223 (Version 2)
Quarter: 2025Q2

REPORT INFORMATION
  Report Type: Spontaneous
  Country: US (occurrence: US)
  Receive Date: 20250213
  Receipt Date: 20250408
  Transmission Date: 20250716
  Serious: Yes (Hospitalization)
  Sender: STRIDES
  Company Number: None

PATIENT
  Age: 68 Year
  Sex: Female

DRUGS (15)
  1. FLUOXETINE [Interacting]
     Active Substance: FLUOXETINE HYDROCHLORIDE
     Indication: Schizophrenia
     Route: 065
  2. CLOZAPINE [Interacting]
     Active Substance: CLOZAPINE
     Indication: Schizophrenia
     Route: 065
  3. CLOZAPINE [Interacting]
     Active Substance: CLOZAPINE
     Route: 065
  4. CLOZAPINE [Interacting]
     Active Substance: CLOZAPINE
     Route: 065
  5. CLOZAPINE [Interacting]
     Active Substance: CLOZAPINE
     Route: 065
  6. CLOZAPINE [Interacting]
     Active Substance: CLOZAPINE
     Route: 065
  7. CLOZAPINE [Interacting]
     Active Substance: CLOZAPINE
     Route: 065
  8. METOPROLOL SUCCINATE [Interacting]
     Active Substance: METOPROLOL SUCCINATE
     Indication: Hypertension
     Route: 065
  9. RISPERIDONE [Interacting]
     Active Substance: RISPERIDONE
     Indication: Schizophrenia
     Route: 065
  10. RISPERIDONE [Interacting]
     Active Substance: RISPERIDONE
     Route: 065
  11. RISPERIDONE [Interacting]
     Active Substance: RISPERIDONE
     Route: 065
  12. RISPERIDONE [Interacting]
     Active Substance: RISPERIDONE
     Route: 065
  13. RISPERIDONE [Interacting]
     Active Substance: RISPERIDONE
     Route: 065
  14. RISPERIDONE [Interacting]
     Active Substance: RISPERIDONE
     Route: 065
  15. TRAZODONE [Concomitant]
     Active Substance: TRAZODONE HYDROCHLORIDE
     Indication: Schizophrenia
     Route: 065

REACTIONS (4)
  - Orthostatic hypotension [Unknown]
  - Drug interaction [Unknown]
  - Antipsychotic drug level increased [Recovered/Resolved]
  - Off label use [Unknown]
